FAERS Safety Report 5022672-3 (Version None)
Quarter: 2006Q2

REPORT INFORMATION
  Report Type: 
  Country: None (occurrence: None)
  Receive Date: 20060609
  Receipt Date: 20060530
  Transmission Date: 20061013
  Serious: Yes (Death)
  Sender: FDA-Public Use
  Company Number: US-JNJFOC-20060404883

PATIENT
  Sex: Female

DRUGS (4)
  1. TOPAMAX [Suspect]
     Route: 048
  2. TOPAMAX [Suspect]
     Indication: DRUG USE FOR UNKNOWN INDICATION
     Route: 048
  3. LORTAB [Concomitant]
  4. LORTAB [Concomitant]
     Indication: PAIN

REACTIONS (1)
  - ROAD TRAFFIC ACCIDENT [None]
